FAERS Safety Report 10008841 (Version 2)
Quarter: 2014Q1

REPORT INFORMATION
  Report Type: Spontaneous
  Country: US (occurrence: US)
  Receive Date: 20140312
  Receipt Date: 20140312
  Transmission Date: 20141002
  Serious: No
  Sender: FDA-Public Use
  Company Number: US-INCYTE CORPORATION-2012IN000667

PATIENT
  Age: 63 Year
  Sex: Female
  Weight: 57 kg

DRUGS (11)
  1. JAKAFI [Suspect]
     Indication: MYELOFIBROSIS
     Dosage: 15 MG, BID
     Route: 048
     Dates: start: 20120105, end: 20120221
  2. JAKAFI [Suspect]
     Dosage: 15 MG, QD
     Route: 048
     Dates: start: 20120222, end: 2012
  3. JAKAFI [Suspect]
     Dosage: 15 MG, BID
     Route: 048
     Dates: start: 2012, end: 20120307
  4. JAKAFI [Suspect]
     Dosage: 15 MG, QAM
     Route: 048
     Dates: start: 20120308, end: 20120430
  5. JAKAFI [Suspect]
     Dosage: 5 MG, QPM
     Route: 048
     Dates: start: 20120308, end: 20120430
  6. JAKAFI [Suspect]
     Dosage: 15 MG, BID
     Route: 048
     Dates: start: 20120501
  7. SINGULAR [Concomitant]
  8. BENADRYL [Concomitant]
  9. ZYRTEC [Concomitant]
  10. LEXAPRO [Concomitant]
  11. NEXIUM [Concomitant]

REACTIONS (5)
  - Respiratory tract infection [Not Recovered/Not Resolved]
  - Sinusitis [Not Recovered/Not Resolved]
  - Red blood cell count decreased [Not Recovered/Not Resolved]
  - Anaemia [Not Recovered/Not Resolved]
  - Thrombocytopenia [Not Recovered/Not Resolved]
